FAERS Safety Report 15680723 (Version 12)
Quarter: 2024Q1

REPORT INFORMATION
  Report Type: Spontaneous
  Country: JP (occurrence: JP)
  Receive Date: 20181203
  Receipt Date: 20240102
  Transmission Date: 20240410
  Serious: Yes (Death, Life-Threatening, Hospitalization, Other)
  Sender: FDA-Public Use
  Company Number: JP-MSD-M2018-37367

PATIENT
  Age: 67 Year
  Sex: Male
  Weight: 55 kg

DRUGS (27)
  1. KEYTRUDA [Suspect]
     Active Substance: PEMBROLIZUMAB
     Indication: Non-small cell lung cancer
     Dosage: 200 MILLIGRAM, Q3W
     Route: 041
     Dates: start: 20180725, end: 20181017
  2. PREDNISOLONE ACETATE [Suspect]
     Active Substance: PREDNISOLONE ACETATE
     Indication: Liver disorder
     Dosage: 30 MILLIGRAM, QD
     Route: 051
     Dates: start: 20181119, end: 20181119
  3. PREDNISOLONE ACETATE [Suspect]
     Active Substance: PREDNISOLONE ACETATE
     Dosage: 60 MILLIGRAM, QD
     Route: 051
     Dates: start: 20181120, end: 20181130
  4. PREDNISOLONE ACETATE [Suspect]
     Active Substance: PREDNISOLONE ACETATE
     Dosage: 50 MILLIGRAM, QD
     Route: 051
     Dates: start: 20190102, end: 20190108
  5. PREDNISOLONE ACETATE [Suspect]
     Active Substance: PREDNISOLONE ACETATE
     Dosage: 30 MILLIGRAM, QD
     Route: 051
     Dates: start: 20190109, end: 20190115
  6. PREDNISOLONE ACETATE [Suspect]
     Active Substance: PREDNISOLONE ACETATE
     Dosage: 15 MILLIGRAM, QD
     Route: 051
     Dates: start: 20190215, end: 20190221
  7. PREDNISOLONE ACETATE [Suspect]
     Active Substance: PREDNISOLONE ACETATE
     Dosage: 20 MILLIGRAM, QD
     Route: 051
     Dates: start: 20190222
  8. PREDONINE [Suspect]
     Active Substance: PREDNISOLONE
     Indication: Liver disorder
     Dosage: 50 MILLIGRAM, QD
     Route: 048
     Dates: start: 20181201, end: 20181205
  9. PREDONINE [Suspect]
     Active Substance: PREDNISOLONE
     Dosage: 40 MILLIGRAM, QD
     Route: 048
     Dates: start: 20181206, end: 20181212
  10. PREDONINE [Suspect]
     Active Substance: PREDNISOLONE
     Dosage: 35 MILLIGRAM, QD
     Route: 048
     Dates: start: 20181213, end: 20181219
  11. PREDONINE [Suspect]
     Active Substance: PREDNISOLONE
     Dosage: 30 MILLIGRAM, QD
     Route: 048
     Dates: start: 20181220, end: 20190101
  12. PREDONINE [Suspect]
     Active Substance: PREDNISOLONE
     Dosage: 25 MILLIGRAM, QD
     Route: 048
     Dates: start: 20190116, end: 20190122
  13. PREDONINE [Suspect]
     Active Substance: PREDNISOLONE
     Dosage: 20 MILLIGRAM, QD
     Route: 048
     Dates: start: 20190123, end: 20190129
  14. PREDONINE [Suspect]
     Active Substance: PREDNISOLONE
     Dosage: 17.5 MILLIGRAM, QD
     Route: 048
     Dates: start: 20190130, end: 20190205
  15. PREDONINE [Suspect]
     Active Substance: PREDNISOLONE
     Dosage: 15 MILLIGRAM, QD
     Dates: start: 20190206, end: 20190212
  16. PREDONINE [Suspect]
     Active Substance: PREDNISOLONE
     Dosage: 12.5 MILLIGRAM, QD
     Route: 048
     Dates: start: 20190213, end: 20190214
  17. CELLCEPT [Suspect]
     Active Substance: MYCOPHENOLATE MOFETIL
     Indication: Liver disorder
     Dosage: 1000 MILLIGRAM, BID
     Route: 048
     Dates: start: 20181127, end: 20181219
  18. CELLCEPT [Suspect]
     Active Substance: MYCOPHENOLATE MOFETIL
     Dosage: 750 MILLIGRAM, BID
     Route: 048
     Dates: start: 20181220, end: 20190101
  19. CELLCEPT [Suspect]
     Active Substance: MYCOPHENOLATE MOFETIL
     Dosage: 500 MILLIGRAM, BID
     Route: 048
     Dates: start: 20190102, end: 20190103
  20. CALONAL [Concomitant]
     Active Substance: ACETAMINOPHEN
     Indication: Cancer pain
     Dosage: 900 MILLIGRAM, TID
     Route: 048
     Dates: start: 20180112, end: 20181129
  21. NEXIUM [Concomitant]
     Active Substance: ESOMEPRAZOLE MAGNESIUM
     Indication: Ulcer
     Dosage: 20 MILLIGRAM, QD
     Route: 048
     Dates: start: 20171208, end: 20181106
  22. LEVETIRACETAM [Concomitant]
     Active Substance: LEVETIRACETAM
     Indication: Epilepsy
     Dosage: 500 MILLIGRAM, BID
     Route: 048
     Dates: start: 20171230, end: 20190217
  23. BETAMETHASONE [Concomitant]
     Active Substance: BETAMETHASONE\BETAMETHASONE DIPROPIONATE
     Indication: Metastases to central nervous system
     Dosage: 0.5 MILLIGRAM, QD
     Route: 048
     Dates: start: 20180221, end: 20181206
  24. OXYCONTIN [Concomitant]
     Active Substance: OXYCODONE HYDROCHLORIDE
     Indication: Cancer pain
     Dosage: 5 MILLIGRAM, BID
     Route: 048
     Dates: end: 20190218
  25. AMBROXOL HYDROCHLORIDE [Concomitant]
     Active Substance: AMBROXOL HYDROCHLORIDE
     Indication: Productive cough
     Dosage: 45 MILLIGRAM, QD
     Route: 048
     Dates: start: 20180801, end: 20190129
  26. SYMPROIC [Concomitant]
     Active Substance: NALDEMEDINE
     Indication: Constipation
     Dosage: 0.2 MILLIGRAM, QD
     Route: 048
     Dates: start: 20180213, end: 20190219
  27. DESLORATADINE [Concomitant]
     Active Substance: DESLORATADINE
     Indication: Rhinorrhoea
     Dosage: 5 MILLIGRAM, QD
     Route: 048
     Dates: start: 20180320, end: 20190109

REACTIONS (6)
  - Sepsis [Fatal]
  - Disseminated intravascular coagulation [Fatal]
  - Septic embolus [Fatal]
  - Cholangitis [Fatal]
  - Liver disorder [Recovering/Resolving]
  - Cholangitis sclerosing [Recovering/Resolving]

NARRATIVE: CASE EVENT DATE: 20181107
